FAERS Safety Report 16143462 (Version 5)
Quarter: 2019Q4

REPORT INFORMATION
  Report Type: Spontaneous
  Country: JP (occurrence: JP)
  Receive Date: 20190401
  Receipt Date: 20191220
  Transmission Date: 20200122
  Serious: Yes (Hospitalization, Other)
  Sender: FDA-Public Use
  Company Number: JP-BRISTOL-MYERS SQUIBB COMPANY-BMS-2019-001581

PATIENT
  Age: 73 Year
  Sex: Female
  Weight: 59 kg

DRUGS (3)
  1. OPDIVO [Suspect]
     Active Substance: NIVOLUMAB
     Indication: METASTATIC RENAL CELL CARCINOMA
     Dosage: 240 MILLIGRAM, Q3WK
     Route: 041
     Dates: start: 20181004, end: 20181206
  2. YERVOY [Suspect]
     Active Substance: IPILIMUMAB
     Indication: METASTATIC RENAL CELL CARCINOMA
     Dosage: 3 MILLIGRAM/KILOGRAM, Q3WK
     Route: 041
     Dates: start: 20181004, end: 20181206
  3. OPDIVO [Suspect]
     Active Substance: NIVOLUMAB
     Indication: PRODUCT USED FOR UNKNOWN INDICATION
     Dosage: 240 MILLIGRAM, Q2WK
     Route: 041

REACTIONS (14)
  - Headache [Unknown]
  - Hyponatraemia [Unknown]
  - Dermatitis [Unknown]
  - Malaise [Unknown]
  - Blood pressure decreased [Unknown]
  - Rash [Unknown]
  - Hypothyroidism [Unknown]
  - Vomiting [Unknown]
  - Adrenal insufficiency [Unknown]
  - Somnolence [Unknown]
  - Hypopituitarism [Unknown]
  - Hypophysitis [Recovered/Resolved]
  - Altered state of consciousness [Unknown]
  - Intentional product use issue [Unknown]

NARRATIVE: CASE EVENT DATE: 20181210
